FAERS Safety Report 8423588-2 (Version None)
Quarter: 2012Q2

REPORT INFORMATION
  Report Type: 
  Country: None (occurrence: None)
  Receive Date: 20120608
  Receipt Date: 20120605
  Transmission Date: 20120825
  Serious: Yes (Death, Hospitalization)
  Sender: FDA-Public Use
  Company Number: US-FRI-1000025386

PATIENT
  Sex: Female
  Weight: 81.65 kg

DRUGS (19)
  1. SPIRIVA [Concomitant]
  2. PHENAZOPYRIDINE HCL TAB [Concomitant]
     Dosage: 200 MG AS NEEDED
  3. OXYGEN [Concomitant]
     Dosage: 5L AT BEDTIME
  4. ADVAIR DISKUS 100/50 [Concomitant]
     Dosage: 500/50
  5. PRILOSEC [Concomitant]
     Dosage: 20 MG
  6. HALCION [Concomitant]
     Dosage: 0.25 MG AT BEDTIME
  7. FOSAMAX [Concomitant]
     Dosage: ONE TIME PER WEEK
  8. NYSTATIN [Concomitant]
  9. DALIRESP [Suspect]
     Indication: CHRONIC OBSTRUCTIVE PULMONARY DISEASE
     Dosage: 500 MCG
     Route: 048
     Dates: start: 20111006, end: 20111109
  10. THEO-24 [Concomitant]
     Dosage: 400 MG
  11. LEXAPRO [Concomitant]
     Dosage: 20 MG
  12. XANAX [Concomitant]
     Dosage: 0.25 MG TWICE DAILY AS NEEDED
  13. VITAMIN D [Concomitant]
     Dosage: 50,000 UNITS
  14. NAPROXEN (ALEVE) [Concomitant]
  15. DIFLUCAN [Concomitant]
     Dosage: 200 MG
  16. CARDIZEM [Concomitant]
  17. NEXIUM [Concomitant]
     Indication: GASTROOESOPHAGEAL REFLUX DISEASE
  18. PREDNISONE [Concomitant]
  19. DUONEB [Concomitant]
     Dosage: EVERY 4-6 HOURS AS NEEDED

REACTIONS (9)
  - FALL [None]
  - TREMOR [None]
  - HEADACHE [None]
  - DIARRHOEA [None]
  - DECREASED APPETITE [None]
  - NAUSEA [None]
  - DIZZINESS [None]
  - PNEUMONIA [None]
  - RENAL FAILURE ACUTE [None]
